FAERS Safety Report 6539363-X (Version None)
Quarter: 2010Q1

REPORT INFORMATION
  Report Type: 
  Country: None (occurrence: None)
  Receive Date: 20100115
  Receipt Date: 20100108
  Transmission Date: 20100710
  Serious: Yes (Other)
  Sender: FDA-Public Use
  Company Number: US-PFIZER INC-2010003932

PATIENT

DRUGS (1)
  1. LIPITOR [Suspect]
     Dosage: UNK
     Dates: start: 20090901, end: 20090901

REACTIONS (6)
  - ABDOMINAL PAIN UPPER [None]
  - ANTISOCIAL BEHAVIOUR [None]
  - DECREASED INTEREST [None]
  - GASTROOESOPHAGEAL REFLUX DISEASE [None]
  - MYALGIA [None]
  - SUICIDAL IDEATION [None]
